FAERS Safety Report 16667350 (Version 3)
Quarter: 2019Q3

REPORT INFORMATION
  Report Type: Report from Study
  Country: DE (occurrence: DE)
  Receive Date: 20190805
  Receipt Date: 20190909
  Transmission Date: 20191004
  Serious: Yes (Hospitalization, Other)
  Sender: FDA-Public Use
  Company Number: DE-BRISTOL-MYERS SQUIBB COMPANY-BMS-2019-074116

PATIENT
  Age: 52 Year
  Sex: Male

DRUGS (9)
  1. NIVOLUMAB [Suspect]
     Active Substance: NIVOLUMAB
     Indication: MALIGNANT MELANOMA
     Dosage: 85 MILLIGRAM, Q3WK
     Route: 042
     Dates: start: 20190528, end: 20190618
  2. MOMETASONE FUROATE. [Concomitant]
     Active Substance: MOMETASONE FUROATE
     Indication: PRODUCT USED FOR UNKNOWN INDICATION
     Dosage: UNK
     Route: 065
  3. NIVOLUMAB [Suspect]
     Active Substance: NIVOLUMAB
     Indication: PRODUCT USED FOR UNKNOWN INDICATION
     Dosage: 83.5 MILLIGRAM, Q3WK
     Route: 042
     Dates: start: 20190709, end: 20190801
  4. PROPRANOLOL HYDROCHLORIDE [PROPRANOLOL] [Concomitant]
     Indication: PRODUCT USED FOR UNKNOWN INDICATION
     Dosage: UNK
     Route: 065
  5. IPILIMUMAB [Suspect]
     Active Substance: IPILIMUMAB
     Indication: MALIGNANT MELANOMA
     Dosage: 255 MILLIGRAM, Q3WK
     Route: 065
     Dates: start: 20190528, end: 20190618
  6. LEVOTHYROXINENATRIUM TEVA [Concomitant]
     Indication: PRODUCT USED FOR UNKNOWN INDICATION
     Dosage: UNK
     Route: 065
  7. THIAMAZOL [Concomitant]
     Active Substance: METHIMAZOLE
     Indication: PRODUCT USED FOR UNKNOWN INDICATION
     Dosage: UNK
     Route: 065
  8. DEXAMETHASONE. [Concomitant]
     Active Substance: DEXAMETHASONE
     Indication: PRODUCT USED FOR UNKNOWN INDICATION
     Dosage: UNK
     Route: 065
  9. IPILIMUMAB [Suspect]
     Active Substance: IPILIMUMAB
     Indication: PRODUCT USED FOR UNKNOWN INDICATION
     Dosage: 250.5 MILLIGRAM, Q3WK
     Route: 065
     Dates: start: 20190709, end: 20190801

REACTIONS (11)
  - Malignant neoplasm progression [Not Recovered/Not Resolved]
  - Hyperthyroidism [Recovered/Resolved]
  - Epilepsy [Unknown]
  - Peripheral motor neuropathy [Recovering/Resolving]
  - Neuralgia [Recovering/Resolving]
  - Fatigue [Recovering/Resolving]
  - Tumour pain [Not Recovered/Not Resolved]
  - Headache [Recovering/Resolving]
  - Hypothyroidism [Recovering/Resolving]
  - Sinus bradycardia [Unknown]
  - Rash maculo-papular [Unknown]

NARRATIVE: CASE EVENT DATE: 20190528
